FAERS Safety Report 14668714 (Version 1)
Quarter: 2018Q1

REPORT INFORMATION
  Report Type: Spontaneous
  Country: US (occurrence: US)
  Receive Date: 20180321
  Receipt Date: 20180321
  Transmission Date: 20180509
  Serious: Yes (Hospitalization)
  Sender: FDA-Public Use
  Company Number: None

PATIENT
  Age: 78 Year
  Sex: Female
  Weight: 86.9 kg

DRUGS (15)
  1. CLONIDINE 0.2 MG TID [Concomitant]
  2. FAMOTIDINE 20 MG DAILY [Concomitant]
  3. AZATHIOPRINE. [Suspect]
     Active Substance: AZATHIOPRINE
     Indication: RHEUMATOID ARTHRITIS
     Route: 048
     Dates: start: 20180122, end: 20180128
  4. LOSARTAN 50 MG DAILY [Concomitant]
  5. ISOSORBIDE 30 MG DAILY [Concomitant]
  6. LEVOCETIRIZINE 5 MG DAILY [Concomitant]
  7. ALLOPURINOL 100 MG DAILY [Concomitant]
  8. ESITALOPRAM 10 MG DAILY [Concomitant]
  9. OXYBUTYNIN 5 MG BID [Concomitant]
  10. HYDRALAZINE 50 MG TID [Concomitant]
  11. CHLORTHALIDONE 25 MG DAILY [Concomitant]
  12. ATORVASTATIN 20 MG DAILY [Concomitant]
  13. CLOPIDOGEL 75 MG DAILY [Concomitant]
  14. GABAPENTIN 100 MG BID [Concomitant]
  15. METFORMIN 500 MG BID [Concomitant]

REACTIONS (8)
  - Asthenia [None]
  - Blood creatinine increased [None]
  - White blood cell count decreased [None]
  - Haemoglobin decreased [None]
  - Decreased appetite [None]
  - Red blood cell count decreased [None]
  - Haematocrit decreased [None]
  - Body temperature increased [None]

NARRATIVE: CASE EVENT DATE: 20180129
